FAERS Safety Report 17004080 (Version 4)
Quarter: 2019Q4

REPORT INFORMATION
  Report Type: Report from Study
  Country: FR (occurrence: FR)
  Receive Date: 20191107
  Receipt Date: 20191217
  Transmission Date: 20200122
  Serious: Yes (Congenital Anomaly, Other)
  Sender: FDA-Public Use
  Company Number: FR-SA-2019SA309382

PATIENT

DRUGS (28)
  1. CEFTRIAXONE SODIUM. [Suspect]
     Active Substance: CEFTRIAXONE SODIUM
     Indication: EXPOSURE DURING PREGNANCY
     Route: 064
  2. RASBURICASE [Suspect]
     Active Substance: RASBURICASE
     Indication: MALIGNANT NEOPLASM OF UNKNOWN PRIMARY SITE
     Route: 064
  3. TAZOCILLINE [Suspect]
     Active Substance: PIPERACILLIN SODIUM\TAZOBACTAM SODIUM
     Indication: EXPOSURE DURING PREGNANCY
  4. G LASTA [Suspect]
     Active Substance: PEGFILGRASTIM
     Indication: MALIGNANT NEOPLASM OF UNKNOWN PRIMARY SITE
     Route: 064
  5. APREPITANT. [Suspect]
     Active Substance: APREPITANT
     Indication: MALIGNANT NEOPLASM OF UNKNOWN PRIMARY SITE
     Route: 064
  6. METOCLOPRAMIDE HYDROCHLORIDE. [Suspect]
     Active Substance: METOCLOPRAMIDE HYDROCHLORIDE
     Indication: EXPOSURE DURING PREGNANCY
  7. AMIKACIN SULFATE. [Suspect]
     Active Substance: AMIKACIN SULFATE
     Indication: EXPOSURE DURING PREGNANCY
  8. G LASTA [Suspect]
     Active Substance: PEGFILGRASTIM
     Indication: EXPOSURE DURING PREGNANCY
  9. OXYCODONE [Suspect]
     Active Substance: OXYCODONE
     Indication: EXPOSURE DURING PREGNANCY
  10. PANTOPRAZOLE SODIUM. [Suspect]
     Active Substance: PANTOPRAZOLE SODIUM
     Indication: MALIGNANT NEOPLASM OF UNKNOWN PRIMARY SITE
     Route: 064
  11. PANTOPRAZOLE SODIUM. [Suspect]
     Active Substance: PANTOPRAZOLE SODIUM
     Indication: EXPOSURE DURING PREGNANCY
  12. ETOPOSIDE. [Suspect]
     Active Substance: ETOPOSIDE
     Indication: MALIGNANT NEOPLASM OF UNKNOWN PRIMARY SITE
     Route: 064
  13. METOCLOPRAMIDE HYDROCHLORIDE. [Suspect]
     Active Substance: METOCLOPRAMIDE HYDROCHLORIDE
     Indication: MALIGNANT NEOPLASM OF UNKNOWN PRIMARY SITE
     Route: 064
  14. AMIKACIN SULFATE. [Suspect]
     Active Substance: AMIKACIN SULFATE
     Indication: MALIGNANT NEOPLASM OF UNKNOWN PRIMARY SITE
     Route: 064
  15. PHLOROGLUCINOL [Suspect]
     Active Substance: PHLOROGLUCINOL
     Indication: EXPOSURE DURING PREGNANCY
  16. CARBOPLATIN. [Suspect]
     Active Substance: CARBOPLATIN
     Indication: MALIGNANT NEOPLASM OF UNKNOWN PRIMARY SITE
     Route: 064
  17. CARBOPLATIN. [Suspect]
     Active Substance: CARBOPLATIN
     Indication: EXPOSURE DURING PREGNANCY
  18. TAZOCILLINE [Suspect]
     Active Substance: PIPERACILLIN SODIUM\TAZOBACTAM SODIUM
     Indication: MALIGNANT NEOPLASM OF UNKNOWN PRIMARY SITE
     Route: 064
  19. PECFENT [Suspect]
     Active Substance: FENTANYL CITRATE
     Indication: EXPOSURE DURING PREGNANCY
  20. LENOGRASTIM [Suspect]
     Active Substance: LENOGRASTIM
     Indication: MALIGNANT NEOPLASM OF UNKNOWN PRIMARY SITE
     Route: 064
  21. LENOGRASTIM [Suspect]
     Active Substance: LENOGRASTIM
     Indication: EXPOSURE DURING PREGNANCY
  22. APREPITANT. [Suspect]
     Active Substance: APREPITANT
     Indication: EXPOSURE DURING PREGNANCY
  23. ETOPOSIDE. [Suspect]
     Active Substance: ETOPOSIDE
     Indication: EXPOSURE DURING PREGNANCY
  24. PECFENT [Suspect]
     Active Substance: FENTANYL CITRATE
     Indication: MALIGNANT NEOPLASM OF UNKNOWN PRIMARY SITE
     Route: 064
  25. RASBURICASE [Suspect]
     Active Substance: RASBURICASE
     Indication: EXPOSURE DURING PREGNANCY
  26. PHLOROGLUCINOL [Suspect]
     Active Substance: PHLOROGLUCINOL
     Indication: MALIGNANT NEOPLASM OF UNKNOWN PRIMARY SITE
     Route: 064
  27. PACLITAXEL. [Suspect]
     Active Substance: PACLITAXEL
     Indication: MALIGNANT NEOPLASM OF UNKNOWN PRIMARY SITE
     Route: 064
  28. OXYCODONE [Suspect]
     Active Substance: OXYCODONE
     Indication: MALIGNANT NEOPLASM OF UNKNOWN PRIMARY SITE
     Route: 064

REACTIONS (2)
  - Cardiac septal defect [Unknown]
  - Foetal exposure during pregnancy [Unknown]
